FAERS Safety Report 4750044-5 (Version None)
Quarter: 2005Q3

REPORT INFORMATION
  Report Type: 
  Country: None (occurrence: None)
  Receive Date: 20050822
  Receipt Date: 20050810
  Transmission Date: 20060218
  Serious: Yes (Life-Threatening)
  Sender: FDA-Public Use
  Company Number: DEU-2005-0001639

PATIENT
  Age: 58 Year
  Sex: Male
  Weight: 72 kg

DRUGS (3)
  1. OXY CR TAB 10 MG(OXY CR TAB 10 MG) (OXYCODONE HYDROCHLORIDE) CR TABLET [Suspect]
     Indication: PAIN
     Dosage: SEE IMAGE
     Route: 048
     Dates: start: 20050322, end: 20050401
  2. OXY CR TAB 10 MG(OXY CR TAB 10 MG) (OXYCODONE HYDROCHLORIDE) CR TABLET [Suspect]
     Indication: PAIN
     Dosage: SEE IMAGE
     Route: 048
     Dates: start: 20050401, end: 20050603
  3. DIPYRONE TAB [Concomitant]

REACTIONS (4)
  - OVERDOSE [None]
  - RESPIRATORY FAILURE [None]
  - RESPIRATORY RATE DECREASED [None]
  - SOMNOLENCE [None]
